FAERS Safety Report 25982708 (Version 1)
Quarter: 2025Q4

REPORT INFORMATION
  Report Type: Spontaneous
  Country: AU (occurrence: AU)
  Receive Date: 20251031
  Receipt Date: 20251031
  Transmission Date: 20260117
  Serious: Yes (Hospitalization)
  Sender: TOLMAR
  Company Number: AU-Tolmar-TLM-2025-07880

PATIENT
  Age: 8 Year
  Sex: Female

DRUGS (2)
  1. ELIGARD [Suspect]
     Active Substance: LEUPROLIDE ACETATE
     Indication: Precocious puberty
     Dates: start: 20250228
  2. ELIGARD [Suspect]
     Active Substance: LEUPROLIDE ACETATE
     Indication: Precocious puberty

REACTIONS (6)
  - Injection site discharge [Unknown]
  - Injection site abscess [Recovering/Resolving]
  - Injection site erythema [Unknown]
  - Injection site pain [Unknown]
  - Injection site scar [Not Recovered/Not Resolved]
  - Pyrexia [Unknown]

NARRATIVE: CASE EVENT DATE: 20250312
